FAERS Safety Report 6103681-X (Version None)
Quarter: 2009Q1

REPORT INFORMATION
  Report Type: 
  Country: None (occurrence: None)
  Receive Date: 20090227
  Receipt Date: 20090218
  Transmission Date: 20090719
  Serious: Yes (Other)
  Sender: FDA-Public Use
  Company Number: 2007JP003974

PATIENT
  Age: 71 Year
  Sex: Male

DRUGS (2)
  1. VESICARE [Suspect]
     Indication: HYPERTONIC BLADDER
     Dosage: 5 MG, UID/QD, ORAL
     Route: 048
     Dates: start: 20070611, end: 20070721
  2. NORVASC (AMLODIPINE BESILATE) PER ORAL NOS [Concomitant]

REACTIONS (1)
  - BRADYCARDIA [None]
